APPROVED DRUG PRODUCT: XACIATO
Active Ingredient: CLINDAMYCIN PHOSPHATE
Strength: EQ 2% BASE
Dosage Form/Route: GEL;VAGINAL
Application: N215650 | Product #001
Applicant: ORGANON LLC
Approved: Dec 7, 2021 | RLD: Yes | RS: Yes | Type: RX

PATENTS:
Patent 11129896 | Expires: Sep 22, 2036
Patent 12303563 | Expires: Sep 22, 2036

EXCLUSIVITY:
Code: NP | Date: Dec 7, 2024
Code: GAIN | Date: Dec 7, 2029